FAERS Safety Report 5156196-X (Version None)
Quarter: 2006Q4

REPORT INFORMATION
  Report Type: 
  Country: None (occurrence: None)
  Receive Date: 20061122
  Receipt Date: 20061120
  Transmission Date: 20070319
  Serious: Yes (Death)
  Sender: FDA-Public Use
  Company Number: 2006UW25811

PATIENT
  Age: 30 Year
  Sex: Female
  Weight: 79.5 kg

DRUGS (2)
  1. SEROQUEL [Suspect]
     Indication: BIPOLAR I DISORDER
     Route: 048
     Dates: start: 20041001
  2. ESKALITH CR [Concomitant]
     Indication: BIPOLAR I DISORDER
     Route: 048
     Dates: start: 20031001, end: 20050830

REACTIONS (2)
  - DRUG EXPOSURE DURING PREGNANCY [None]
  - INTRA-UTERINE DEATH [None]
